FAERS Safety Report 10340705 (Version 1)
Quarter: 2014Q3

REPORT INFORMATION
  Report Type: Spontaneous
  Country: BE (occurrence: None)
  Receive Date: 20140722
  Receipt Date: 20140722
  Transmission Date: 20150326
  Serious: Yes (Death)
  Sender: FDA-Public Use
  Company Number: 2014JUB00053

PATIENT
  Age: 44 Year
  Sex: Male

DRUGS (11)
  1. SAQUINAVIR (SAQUINAVIR) [Concomitant]
  2. RIFAMPIN (RIFAMPIN) (RIFAMPIN) [Concomitant]
     Active Substance: RIFAMPIN
  3. LAMIVUDINE (LAMIVUDINE) [Concomitant]
     Active Substance: LAMIVUDINE
  4. ISONIAZIDE (ISONIAZID) [Concomitant]
  5. METHYLPREDNISOLONE (METHYLPREDNISOLONE) [Suspect]
     Active Substance: METHYLPREDNISOLONE
     Indication: IMMUNE RECONSTITUTION INFLAMMATORY SYNDROME
  6. PYRAZINAMIDE (PYRAZINAMIDE) [Concomitant]
     Active Substance: PYRAZINAMIDE
  7. CLARITHROMYCIN (CLARITHROMYCIN) [Concomitant]
     Active Substance: CLARITHROMYCIN
  8. ZIDOVUDINE (ZIDOVUDINE) [Concomitant]
     Active Substance: ZIDOVUDINE
  9. ETHAMBUTOL [Concomitant]
     Active Substance: ETHAMBUTOL HYDROCHLORIDE
  10. RITONAVIR (RITONAVIR) [Concomitant]
     Active Substance: RITONAVIR
  11. ABACAVIR (ABACAVIR) [Concomitant]
     Active Substance: ABACAVIR

REACTIONS (5)
  - Pulmonary oedema [None]
  - Aspergillus infection [None]
  - Progressive multifocal leukoencephalopathy [None]
  - Bronchopneumonia [None]
  - Brain oedema [None]
